FAERS Safety Report 6084231-3 (Version None)
Quarter: 2009Q1

REPORT INFORMATION
  Report Type: 
  Country: None (occurrence: None)
  Receive Date: 20090217
  Receipt Date: 20090203
  Transmission Date: 20090719
  Serious: Yes (Hospitalization)
  Sender: FDA-Public Use
  Company Number: 2009-00232

PATIENT
  Age: 57 Year
  Sex: Male
  Weight: 89 kg

DRUGS (15)
  1. VELCADE [Suspect]
     Indication: MULTIPLE MYELOMA
     Dosage: 1.3 MG/M2, INTRAVENOUS
     Route: 042
     Dates: start: 20081031, end: 20081230
  2. CYCLOPHOSPHAMIDE [Suspect]
     Indication: MULTIPLE MYELOMA
     Dosage: 900 MG/M2, INTRAVENOUS
     Route: 042
     Dates: start: 20081031, end: 20081219
  3. DEXAMETHASONE TAB [Suspect]
     Indication: MULTIPLE MYELOMA
     Dosage: 40 MG, ORAL
     Route: 048
     Dates: start: 20081031, end: 20081231
  4. CIPROFLOXACIN HCL [Concomitant]
  5. MACROGOL (MACROGOL) [Concomitant]
  6. ISOSORBIDE DINITRATE [Concomitant]
  7. SODIUM PICOSULFATE (SODIUM PICOSULFATE) [Concomitant]
  8. MORPHINE [Concomitant]
  9. FENTICONAZOLE (FENTICONAZOLE) [Concomitant]
  10. METAMIZOLE (METAMIZOLE) [Concomitant]
  11. TRAMADOL HYDROHLORIDE [Concomitant]
  12. ACYCLOVIR [Concomitant]
  13. AUGMENTIN '125' [Concomitant]
  14. RULID (ROXITHROMYCIN) [Concomitant]
  15. PANTOPRAZOLE SODIUM [Concomitant]

REACTIONS (7)
  - ABDOMINAL PAIN [None]
  - ALVEOLITIS ALLERGIC [None]
  - ANAL FISSURE [None]
  - CONSTIPATION [None]
  - DYSPNOEA EXERTIONAL [None]
  - INTERSTITIAL LUNG DISEASE [None]
  - PNEUMONIA [None]
